FAERS Safety Report 6044052-4 (Version None)
Quarter: 2009Q1

REPORT INFORMATION
  Report Type: 
  Country: None (occurrence: None)
  Receive Date: 20090114
  Receipt Date: 20090114
  Transmission Date: 20090719
  Serious: Yes (Other)
  Sender: FDA-Public Use
  Company Number: None

PATIENT
  Age: 67 Year
  Sex: Male
  Weight: 167.8309 kg

DRUGS (1)
  1. MIRAPEX [Suspect]
     Indication: RESTLESS LEGS SYNDROME
     Dosage: 1.5- 3.0 MG DAILY OROPHARINGEAL 3
     Route: 049
     Dates: start: 20051231, end: 20081231

REACTIONS (11)
  - ABNORMAL BEHAVIOUR [None]
  - COMPULSIONS [None]
  - COMPULSIVE SHOPPING [None]
  - EATING DISORDER [None]
  - FATIGUE [None]
  - HYPERPHAGIA [None]
  - INSOMNIA [None]
  - PATHOLOGICAL GAMBLING [None]
  - SOMNOLENCE [None]
  - THINKING ABNORMAL [None]
  - WEIGHT INCREASED [None]
